FAERS Safety Report 7515203-7 (Version None)
Quarter: 2011Q2

REPORT INFORMATION
  Report Type: 
  Country: None (occurrence: None)
  Receive Date: 20110601
  Receipt Date: 20110518
  Transmission Date: 20111010
  Serious: Yes (Other)
  Sender: FDA-Public Use
  Company Number: PHHY2011JP31357

PATIENT
  Age: 75 Year
  Sex: Male

DRUGS (9)
  1. PETROLATUM [Concomitant]
  2. NERISONA [Concomitant]
     Dates: start: 20090817, end: 20100301
  3. GLEEVEC [Suspect]
     Indication: GASTROINTESTINAL STROMAL TUMOUR
     Dosage: 400 MG, DAILY
     Route: 048
     Dates: start: 20090526, end: 20090817
  4. LIDOMEX [Concomitant]
     Dates: start: 20090817, end: 20090906
  5. ALLELOCK [Concomitant]
     Dosage: 10 MG, UNK
     Route: 048
     Dates: start: 20090817, end: 20090906
  6. KERATINAMIN [Concomitant]
     Dates: start: 20090817, end: 20100301
  7. GLEEVEC [Suspect]
     Dosage: 200 MG, DAILY
     Route: 048
     Dates: start: 20090907, end: 20091002
  8. GLEEVEC [Suspect]
     Dosage: 200 MG, DAILY
     Route: 048
     Dates: start: 20091114
  9. HIRUDOID [Concomitant]
     Dates: start: 20090926, end: 20100301

REACTIONS (4)
  - LIP EROSION [None]
  - RASH [None]
  - HYPERKERATOSIS [None]
  - EOSINOPHIL COUNT INCREASED [None]
